FAERS Safety Report 5517487-3 (Version None)
Quarter: 2007Q4

REPORT INFORMATION
  Report Type: 
  Country: None (occurrence: None)
  Receive Date: 20071114
  Receipt Date: 20071102
  Transmission Date: 20080405
  Serious: Yes (Death, Life-Threatening)
  Sender: FDA-Public Use
  Company Number: US-PFIZER INC-2007078361

PATIENT
  Sex: Male

DRUGS (1)
  1. DILANTIN [Suspect]

REACTIONS (1)
  - TRAUMATIC BRAIN INJURY [None]
